FAERS Safety Report 10088092 (Version 1)
Quarter: 2014Q2

REPORT INFORMATION
  Report Type: Report from Study
  Country: DE (occurrence: DE)
  Receive Date: 20140421
  Receipt Date: 20140421
  Transmission Date: 20141212
  Serious: Yes (Hospitalization)
  Sender: FDA-Public Use
  Company Number: DE-ROCHE-1379287

PATIENT
  Age: 49 Year
  Sex: Female
  Weight: 59 kg

DRUGS (5)
  1. TRASTUZUMAB [Suspect]
     Indication: BREAST CANCER
     Dosage: LOADING DOSE
     Route: 042
     Dates: start: 20131118, end: 20131118
  2. TRASTUZUMAB [Suspect]
     Dosage: MAINTENANCE DOSE LAST DOSE PRIOR TO SAE 03/MAR/2014
     Route: 042
     Dates: start: 20131209
  3. PERTUZUMAB [Suspect]
     Indication: BREAST CANCER
     Dosage: LOADING DOSE
     Route: 042
     Dates: start: 20131230, end: 20131230
  4. PERTUZUMAB [Suspect]
     Dosage: MAINTENANCE DOSE LAST DOSE PRIOR TO SAE 03/MAR/2014
     Route: 042
     Dates: start: 20140120
  5. PACLITAXEL [Suspect]
     Indication: BREAST CANCER
     Dosage: DATE OF LAST DOSE PRIOR TO SAE 17/03/2014
     Route: 042
     Dates: start: 20131230

REACTIONS (1)
  - Thrombosis [Recovered/Resolved]
